FAERS Safety Report 6328640-3 (Version None)
Quarter: 2009Q3

REPORT INFORMATION
  Report Type: 
  Country: None (occurrence: None)
  Receive Date: 20090825
  Receipt Date: 20090825
  Transmission Date: 20100115
  Serious: No
  Sender: FDA-Public Use
  Company Number: None

PATIENT
  Sex: Female
  Weight: 280.323 kg

DRUGS (1)
  1. AMPHETAMINE SALT- BARR PHARMACEUTICAL [Suspect]
     Indication: ATTENTION DEFICIT/HYPERACTIVITY DISORDER
     Dosage: 15 MG QAM ORAL
     Route: 048
     Dates: start: 20090601, end: 20090801

REACTIONS (1)
  - PRODUCT SUBSTITUTION ISSUE [None]
